FAERS Safety Report 22664085 (Version 2)
Quarter: 2023Q4

REPORT INFORMATION
  Report Type: Spontaneous
  Country: US (occurrence: US)
  Receive Date: 20230703
  Receipt Date: 20231005
  Transmission Date: 20240110
  Serious: No
  Sender: FDA-Public Use
  Company Number: US-CIPLA LTD.-2023US02546

PATIENT

DRUGS (2)
  1. LANREOTIDE ACETATE [Suspect]
     Active Substance: LANREOTIDE ACETATE
     Indication: Product used for unknown indication
     Dosage: UNK
     Route: 065
  2. LANREOTIDE ACETATE [Suspect]
     Active Substance: LANREOTIDE ACETATE
     Dosage: UNK
     Route: 065
     Dates: start: 20230508

REACTIONS (4)
  - Incorrect dose administered by product [Unknown]
  - Wrong technique in product usage process [Unknown]
  - Product packaging difficult to open [Unknown]
  - Product communication issue [Unknown]

NARRATIVE: CASE EVENT DATE: 20230508
